FAERS Safety Report 6183869-2 (Version None)
Quarter: 2009Q2

REPORT INFORMATION
  Report Type: 
  Country: None (occurrence: None)
  Receive Date: 20090508
  Receipt Date: 20090427
  Transmission Date: 20091009
  Serious: Yes (Other)
  Sender: FDA-Public Use
  Company Number: CA-ROCHE-630083

PATIENT
  Sex: Male
  Weight: 72.6 kg

DRUGS (3)
  1. PEG-INTERFERON ALFA 2A (RO 25-8310) [Suspect]
     Dosage: DATE OF LAST DOSE PRIOR TO SAE; 18 AUGUST 2008
     Route: 058
     Dates: start: 20070316
  2. RIBAVIRIN [Suspect]
     Dosage: DOSEAGE: 1200 (UNITS NOT PROVIDED) DAILY DATE OF LAST DOSE PRIOR TO SAE; 24 AUG 2008
     Route: 048
     Dates: start: 20070316
  3. PARIET [Concomitant]

REACTIONS (1)
  - NON-HODGKIN'S LYMPHOMA [None]
